FAERS Safety Report 15318822 (Version 1)
Quarter: 2018Q3

REPORT INFORMATION
  Report Type: Spontaneous
  Country: US (occurrence: US)
  Receive Date: 20180819
  Receipt Date: 20180819
  Transmission Date: 20181010
  Serious: Yes (Life-Threatening, Hospitalization)
  Sender: FDA-Public Use
  Company Number: None

PATIENT
  Age: 63 Year
  Sex: Male
  Weight: 112.5 kg

DRUGS (11)
  1. XIFAXAN [Concomitant]
     Active Substance: RIFAXIMIN
  2. CENTRUM SILVER (MEN) [Concomitant]
  3. TRESIBA [Concomitant]
     Active Substance: INSULIN DEGLUDEC
  4. METFORMIN [Concomitant]
     Active Substance: METFORMIN HYDROCHLORIDE
  5. HUMALOG [Concomitant]
     Active Substance: INSULIN LISPRO
  6. LACTALOSE [Concomitant]
     Active Substance: LACTULOSE
  7. PANTOPRAZOLE [Concomitant]
     Active Substance: PANTOPRAZOLE
  8. LEVOTHYROXINE. [Concomitant]
     Active Substance: LEVOTHYROXINE
  9. ASPERIN [Concomitant]
  10. SOLCO HEALTHCARE US VALSARTAN TABLETS, USP  160 MG [Suspect]
     Active Substance: VALSARTAN
     Indication: HYPERTENSION
     Dosage: ?          QUANTITY:1 TABLET(S);?
     Route: 048
  11. NADOLOL. [Concomitant]
     Active Substance: NADOLOL

REACTIONS (2)
  - Product use issue [None]
  - Hepatic cancer [None]

NARRATIVE: CASE EVENT DATE: 20171211
